FAERS Safety Report 4312833-0 (Version None)
Quarter: 2004Q1

REPORT INFORMATION
  Report Type: 
  Country: None (occurrence: None)
  Receive Date: 20040304
  Receipt Date: 20040220
  Transmission Date: 20041129
  Serious: Yes (Hospitalization)
  Sender: FDA-Public Use
  Company Number: J081-AC002T-3085

PATIENT
  Age: 85 Year
  Sex: Female

DRUGS (5)
  1. DONEPEZIL HCL [Suspect]
     Indication: DEMENTIA
     Dosage: 3 MG, 1 IN 1 D, ORAL
     Route: 048
     Dates: start: 20020605, end: 20020617
  2. MADOPAR (MADOPAR) [Concomitant]
  3. DOPS (DROXIDOPA) [Concomitant]
  4. PARLODEL [Concomitant]
  5. SELBEX (TEPRENONE) [Concomitant]

REACTIONS (5)
  - ANOREXIA [None]
  - CONDITION AGGRAVATED [None]
  - INTESTINAL ISCHAEMIA [None]
  - MELAENA [None]
  - PARKINSON'S DISEASE [None]
